FAERS Safety Report 11068054 (Version 1)
Quarter: 2015Q2

REPORT INFORMATION
  Report Type: Spontaneous
  Country: US (occurrence: None)
  Receive Date: 20150424
  Receipt Date: 20150424
  Transmission Date: 20150821
  Serious: Yes (Other)
  Sender: FDA-Public Use
  Company Number: None

PATIENT
  Age: 43 Year
  Sex: Male

DRUGS (7)
  1. HARVONI [Suspect]
     Active Substance: LEDIPASVIR\SOFOSBUVIR
     Indication: CHRONIC HEPATITIS C
     Route: 048
     Dates: start: 20150207
  2. POTASSIUM [Concomitant]
     Active Substance: POTASSIUM
  3. XANAX [Concomitant]
     Active Substance: ALPRAZOLAM
  4. LEVOTHROID [Concomitant]
     Active Substance: LEVOTHYROXINE SODIUM
  5. METHADONE [Concomitant]
     Active Substance: METHADONE HYDROCHLORIDE
  6. OXYCODONE [Concomitant]
     Active Substance: OXYCODONE
  7. MELATONIN [Concomitant]
     Active Substance: MELATONIN

REACTIONS (4)
  - Headache [None]
  - Epistaxis [None]
  - Fatigue [None]
  - Dry mouth [None]
